FAERS Safety Report 5022821-7 (Version None)
Quarter: 2006Q2

REPORT INFORMATION
  Report Type: 
  Country: None (occurrence: None)
  Receive Date: 20060426
  Receipt Date: 20060224
  Transmission Date: 20061013
  Serious: Yes (Other)
  Sender: FDA-Public Use
  Company Number: 2006029973

PATIENT

DRUGS (1)
  1. LYRICA [Suspect]
     Indication: SCLERODERMA

REACTIONS (1)
  - RESTLESS LEGS SYNDROME [None]
